FAERS Safety Report 20444145 (Version 1)
Quarter: 2022Q1

REPORT INFORMATION
  Report Type: Spontaneous
  Country: US (occurrence: None)
  Receive Date: 20220207
  Receipt Date: 20220207
  Transmission Date: 20220423
  Serious: No
  Sender: FDA-Public Use
  Company Number: None

PATIENT
  Age: 67 Year
  Sex: Female
  Weight: 125.8 kg

DRUGS (1)
  1. VENLAFAXINE HYDROCHLORIDE [Suspect]
     Active Substance: VENLAFAXINE HYDROCHLORIDE
     Indication: Bone pain
     Dosage: FREQUENCY : DAILY;?
     Route: 048

REACTIONS (2)
  - Muscle twitching [None]
  - Muscular weakness [None]

NARRATIVE: CASE EVENT DATE: 20211218
